FAERS Safety Report 4371649-X (Version None)
Quarter: 2004Q2

REPORT INFORMATION
  Report Type: 
  Country: None (occurrence: None)
  Receive Date: 20040604
  Receipt Date: 20040604
  Transmission Date: 20050107
  Serious: Yes (Hospitalization)
  Sender: FDA-Public Use
  Company Number: None

PATIENT
  Age: 78 Year
  Sex: Male
  Weight: 95.3 kg

DRUGS (7)
  1. INTEGRILIN [Suspect]
     Dosage: 2(8.5 ML BOLUSES) 7.5ML/HR IV
     Route: 042
     Dates: start: 20040527, end: 20040528
  2. HEPARIN [Suspect]
     Dosage: 4775 UNITS IV
     Route: 042
     Dates: start: 20040527
  3. NITROGLYCERIN [Concomitant]
  4. ASPIRIN [Concomitant]
  5. PEPCID [Concomitant]
  6. CLOPIDOGREL BISULFATE [Concomitant]
  7. ACETYLCYSTEINE [Concomitant]

REACTIONS (3)
  - DRUG INEFFECTIVE [None]
  - POST PROCEDURAL HAEMATOMA [None]
  - POST PROCEDURAL HAEMORRHAGE [None]
